FAERS Safety Report 6749515-1 (Version None)
Quarter: 2010Q2

REPORT INFORMATION
  Report Type: 
  Country: None (occurrence: None)
  Receive Date: 20100527
  Receipt Date: 20100527
  Transmission Date: 20101027
  Serious: Yes (Life-Threatening, Hospitalization)
  Sender: FDA-Public Use
  Company Number: None

PATIENT
  Sex: Female

DRUGS (2)
  1. DIAZEPAM [Suspect]
     Indication: INSOMNIA
     Dosage: 3 TIMES A DAY
     Dates: start: 20100514
  2. DIAZEPAM [Suspect]
     Indication: MUSCLE SPASMS
     Dosage: 3 TIMES A DAY
     Dates: start: 20100514

REACTIONS (1)
  - MUSCLE SPASMS [None]
